FAERS Safety Report 4865856-7 (Version None)
Quarter: 2005Q4

REPORT INFORMATION
  Report Type: 
  Country: None (occurrence: None)
  Receive Date: 20051220
  Receipt Date: 20051207
  Transmission Date: 20060501
  Serious: Yes (Hospitalization)
  Sender: FDA-Public Use
  Company Number: 2005156976

PATIENT
  Age: 38 Year
  Sex: Female

DRUGS (2)
  1. PROVERA [Suspect]
     Indication: AMENORRHOEA
     Dosage: 5 MG (5 MG, ONCE DAILY FOR 6 DAYS), ORAL
     Route: 048
     Dates: start: 20051105, end: 20051110
  2. PROVERA [Suspect]
     Indication: OVARIAN CYST
     Dosage: 5 MG (5 MG, ONCE DAILY FOR 6 DAYS), ORAL
     Route: 048
     Dates: start: 20051105, end: 20051110

REACTIONS (7)
  - ABDOMINAL PAIN [None]
  - DEHYDRATION [None]
  - DIARRHOEA [None]
  - DIZZINESS [None]
  - NAUSEA [None]
  - POLLAKIURIA [None]
  - VAGINAL HAEMORRHAGE [None]
